FAERS Safety Report 7056175-1 (Version None)
Quarter: 2010Q4

REPORT INFORMATION
  Report Type: 
  Country: None (occurrence: None)
  Receive Date: 20101021
  Receipt Date: 20101012
  Transmission Date: 20110411
  Serious: Yes (Hospitalization)
  Sender: FDA-Public Use
  Company Number: FR-BAXTER-2010BH025757

PATIENT
  Age: 26 Year
  Sex: Female

DRUGS (12)
  1. CYCLOPHOSPHAMIDE [Suspect]
     Indication: NEUROPSYCHIATRIC LUPUS
     Route: 048
     Dates: start: 20100908
  2. PLAQUENIL [Suspect]
     Indication: NEUROPSYCHIATRIC LUPUS
     Route: 048
  3. PREDNISONE [Suspect]
     Indication: NEUROPSYCHIATRIC LUPUS
     Route: 048
     Dates: start: 20100911
  4. DEPAKENE [Suspect]
     Indication: EPILEPSY
     Route: 048
     Dates: start: 20100911
  5. TRANDATE [Suspect]
     Indication: PRE-ECLAMPSIA
     Route: 065
     Dates: start: 20100906, end: 20100901
  6. LOXEN [Suspect]
     Indication: PRE-ECLAMPSIA
     Route: 065
     Dates: start: 20100906
  7. LOVENOX [Suspect]
     Indication: PROPHYLAXIS
     Route: 065
     Dates: start: 20100907
  8. KARDEGIC [Suspect]
     Indication: PRE-ECLAMPSIA
     Route: 048
     Dates: start: 20100907, end: 20100901
  9. TAMSULOSIN HCL [Concomitant]
     Indication: BLADDER DISORDER
     Route: 048
     Dates: end: 20100512
  10. ESOMEPRAZOLE [Concomitant]
     Indication: PRODUCT USED FOR UNKNOWN INDICATION
     Route: 065
     Dates: end: 20100512
  11. CELLCEPT [Concomitant]
     Indication: NEUROPSYCHIATRIC LUPUS
     Route: 065
     Dates: end: 20100512
  12. SOLUPRED [Concomitant]
     Indication: NEUROPSYCHIATRIC LUPUS
     Route: 048
     Dates: start: 20100811, end: 20100911

REACTIONS (8)
  - DRUG EXPOSURE DURING PREGNANCY [None]
  - DYSARTHRIA [None]
  - EPILEPSY [None]
  - HELLP SYNDROME [None]
  - HEPATIC ENZYME INCREASED [None]
  - INTRA-UTERINE DEATH [None]
  - PARAESTHESIA [None]
  - THROMBOCYTOPENIA [None]
